FAERS Safety Report 8018330-3 (Version None)
Quarter: 2012Q1

REPORT INFORMATION
  Report Type: 
  Country: None (occurrence: None)
  Receive Date: 20120103
  Receipt Date: 20111223
  Transmission Date: 20120608
  Serious: Yes (Hospitalization)
  Sender: FDA-Public Use
  Company Number: US-BAYER-2011-057831

PATIENT
  Age: 36 Year
  Sex: Female
  Weight: 79.819 kg

DRUGS (12)
  1. WELLBUTRIN [Concomitant]
     Indication: ANXIETY
     Dosage: 20 MG, BID
     Dates: start: 20060501, end: 20110801
  2. ALPRAZOLAM [Concomitant]
     Dosage: UNK
     Dates: start: 20060601
  3. EFFEXOR [Concomitant]
     Dosage: UNK
     Dates: start: 20020506, end: 20030221
  4. GLUCOPHAGE [Concomitant]
     Indication: POLYCYSTIC OVARIES
     Dosage: UNK
     Dates: start: 20020401
  5. YASMIN [Suspect]
     Dosage: UNK
     Dates: start: 20060101, end: 20091101
  6. WELLBUTRIN [Concomitant]
     Indication: DEPRESSION
  7. CLONAZEPAM [Concomitant]
  8. NSAID'S [Concomitant]
     Dosage: UNK UNK, PRN
  9. ZOCOR [Concomitant]
     Indication: BLOOD CHOLESTEROL INCREASED
     Dosage: 20 MG, QD
     Dates: start: 20040101
  10. XANAX [Concomitant]
     Dosage: 1 MG, BID
  11. ANTIBIOTICS [Concomitant]
     Dosage: UNK UNK, PRN
  12. EFFEXOR [Concomitant]
     Dosage: UNK
     Dates: start: 20040621, end: 20040722

REACTIONS (7)
  - ABDOMINAL PAIN [None]
  - CHOLECYSTITIS CHRONIC [None]
  - GALLBLADDER DISORDER [None]
  - DIARRHOEA [None]
  - BILIARY DYSKINESIA [None]
  - MENTAL DISORDER [None]
  - ANXIETY [None]
